FAERS Safety Report 19202163 (Version 2)
Quarter: 2021Q3

REPORT INFORMATION
  Report Type: Spontaneous
  Country: CN (occurrence: CN)
  Receive Date: 20210502
  Receipt Date: 20210706
  Transmission Date: 20211014
  Serious: Yes (Other)
  Sender: FDA-Public Use
  Company Number: NVSC2021CN095197

PATIENT
  Age: 48 Year
  Sex: Male

DRUGS (2)
  1. TOBRADEX [Suspect]
     Active Substance: DEXAMETHASONE\TOBRAMYCIN
     Dosage: UNK
     Route: 065
  2. TOBRADEX [Suspect]
     Active Substance: DEXAMETHASONE\TOBRAMYCIN
     Indication: PRODUCT USED FOR UNKNOWN INDICATION
     Dosage: UNK (ONCE EVERY 2?3 DAYS)
     Route: 065

REACTIONS (6)
  - Eye pain [Unknown]
  - Eye inflammation [Unknown]
  - Eye discharge [Unknown]
  - Dry eye [Unknown]
  - Product quality issue [Unknown]
  - Blindness [Unknown]

NARRATIVE: CASE EVENT DATE: 2016
